FAERS Safety Report 4903484-5 (Version None)
Quarter: 2006Q1

REPORT INFORMATION
  Report Type: 
  Country: None (occurrence: None)
  Receive Date: 20060208
  Receipt Date: 20060125
  Transmission Date: 20060701
  Serious: Yes (Hospitalization)
  Sender: FDA-Public Use
  Company Number: FR-BOEHRINGER INGELHEIM PHARMACEUTICALS, INC.-2006-FF-00055FF

PATIENT
  Age: 41 Year
  Sex: Female
  Weight: 61 kg

DRUGS (3)
  1. VIRAMUNE [Suspect]
     Indication: HIV INFECTION
     Route: 048
     Dates: start: 19980815, end: 20050615
  2. VIDEX [Concomitant]
     Indication: HIV INFECTION
     Route: 048
     Dates: start: 19981208, end: 20050615
  3. KALETRA [Concomitant]
     Indication: HIV INFECTION
     Route: 048
     Dates: start: 20010115

REACTIONS (10)
  - ABORTION INDUCED [None]
  - ANAEMIA [None]
  - BILIARY FIBROSIS [None]
  - DRUG EXPOSURE DURING PREGNANCY [None]
  - HEPATIC CIRRHOSIS [None]
  - MELAENA [None]
  - PAIN [None]
  - PORTAL HYPERTENSION [None]
  - PORTAL VEIN THROMBOSIS [None]
  - VARICES OESOPHAGEAL [None]
